FAERS Safety Report 18587212 (Version 1)
Quarter: 2020Q4

REPORT INFORMATION
  Report Type: Spontaneous
  Country: US (occurrence: US)
  Receive Date: 20201207
  Receipt Date: 20201207
  Transmission Date: 20210114
  Serious: No
  Sender: FDA-Public Use
  Company Number: US-PFIZER INC-2020476788

PATIENT
  Age: 65 Year
  Sex: Male
  Weight: 90.72 kg

DRUGS (3)
  1. GABAPENTIN. [Suspect]
     Active Substance: GABAPENTIN
     Indication: TRIGEMINAL NEURALGIA
     Dosage: 2400 MG, 1X/DAY
  2. GABAPENTIN. [Suspect]
     Active Substance: GABAPENTIN
     Dosage: 300 MG (300MG CAPSULES, BY MOUTH)
     Route: 048
     Dates: start: 20201010
  3. GABAPENTIN. [Suspect]
     Active Substance: GABAPENTIN
     Dosage: 3600 MG, 1X/DAY (FOUR 300MG CAPSULES THREE TIMES A DAY BY MOUTH)
     Route: 048
     Dates: start: 20201010

REACTIONS (8)
  - Confusional state [Unknown]
  - Ejaculation failure [Unknown]
  - Drug ineffective for unapproved indication [Unknown]
  - Libido disorder [Unknown]
  - Off label use [Unknown]
  - Anorgasmia [Unknown]
  - Clumsiness [Unknown]
  - Balance disorder [Unknown]
